FAERS Safety Report 10058667 (Version 2)
Quarter: 2014Q2

REPORT INFORMATION
  Report Type: Spontaneous
  Country: US (occurrence: US)
  Receive Date: 20140404
  Receipt Date: 20140529
  Transmission Date: 20141212
  Serious: No
  Sender: FDA-Public Use
  Company Number: US-PFIZER INC-2014094032

PATIENT
  Age: 54 Year
  Sex: Male

DRUGS (1)
  1. INLYTA [Suspect]
     Indication: NEOPLASM MALIGNANT
     Dosage: 10 MG, 2X/DAY
     Route: 048
     Dates: start: 20140220, end: 20140401

REACTIONS (2)
  - Disease progression [Unknown]
  - Neoplasm malignant [Unknown]
